FAERS Safety Report 7555936-X (Version None)
Quarter: 2011Q2

REPORT INFORMATION
  Report Type: 
  Country: None (occurrence: None)
  Receive Date: 20110618
  Receipt Date: 20110606
  Transmission Date: 20111010
  Serious: Yes (Hospitalization, Other)
  Sender: FDA-Public Use
  Company Number: US-ELI_LILLY_AND_COMPANY-US201105001629

PATIENT
  Age: 65 Year
  Sex: Female
  Weight: 59 kg

DRUGS (4)
  1. SYNTHROID [Concomitant]
  2. ADVAIR DISKUS 100/50 [Concomitant]
  3. FORTEO [Suspect]
     Dosage: 20 UG, QD
     Route: 030
  4. FORTEO [Suspect]
     Indication: OSTEOPOROTIC FRACTURE
     Dosage: 20 UG, QD
     Route: 030
     Dates: start: 20110305, end: 20110424

REACTIONS (1)
  - SYNCOPE [None]
